FAERS Safety Report 5580898-4 (Version None)
Quarter: 2008Q1

REPORT INFORMATION
  Report Type: 
  Country: None (occurrence: None)
  Receive Date: 20080103
  Receipt Date: 20071220
  Transmission Date: 20080703
  Serious: Yes (Death, Hospitalization)
  Sender: FDA-Public Use
  Company Number: JP-AMGEN-US252141

PATIENT
  Sex: Female

DRUGS (5)
  1. ENBREL [Suspect]
     Indication: RHEUMATOID ARTHRITIS
     Route: 058
     Dates: start: 20070305, end: 20070511
  2. RHEUMATREX [Suspect]
     Indication: RHEUMATOID ARTHRITIS
     Dosage: UNKNOWN DOSAGE
     Route: 065
     Dates: start: 20070224, end: 20070307
  3. RHEUMATREX [Suspect]
     Dosage: UNKNOWN DOSAGE
     Route: 065
     Dates: start: 20070308, end: 20070511
  4. RHEUMATREX [Suspect]
     Route: 065
  5. ACTONEL [Concomitant]

REACTIONS (3)
  - FUNGAL INFECTION [None]
  - INTERSTITIAL LUNG DISEASE [None]
  - PNEUMOCYSTIS JIROVECI PNEUMONIA [None]
